FAERS Safety Report 24788723 (Version 1)
Quarter: 2024Q4

REPORT INFORMATION
  Report Type: Spontaneous
  Country: CN (occurrence: CN)
  Receive Date: 20241230
  Receipt Date: 20241230
  Transmission Date: 20250115
  Serious: Yes (Other)
  Sender: PFIZER
  Company Number: CN-PFIZER INC-PV202400166589

PATIENT
  Age: 66 Year
  Sex: Female

DRUGS (2)
  1. SUNITINIB MALATE [Suspect]
     Active Substance: SUNITINIB MALATE
     Indication: Neoplasm
     Dosage: 12.5 MG, 1X/DAY
     Route: 048
     Dates: start: 20241031, end: 20241119
  2. SUNITINIB MALATE [Suspect]
     Active Substance: SUNITINIB MALATE
     Indication: Renal cancer

REACTIONS (3)
  - Myelosuppression [Recovering/Resolving]
  - Hypophagia [Unknown]
  - Off label use [Unknown]

NARRATIVE: CASE EVENT DATE: 20240101
